FAERS Safety Report 19602361 (Version 1)
Quarter: 2021Q3

REPORT INFORMATION
  Report Type: Spontaneous
  Country: NL (occurrence: NL)
  Receive Date: 20210723
  Receipt Date: 20210723
  Transmission Date: 20211014
  Serious: Yes (Life-Threatening, Hospitalization)
  Sender: FDA-Public Use
  Company Number: NL-TEVA-2021-NL-1934567

PATIENT
  Age: 65 Year
  Sex: Male
  Weight: 85 kg

DRUGS (7)
  1. PERINDOPRIL TABLET 10MG (ARGININE) / COVERSYL ARG TABLET FILMOMHULD 10 [Concomitant]
     Dosage: 10 MG, THERAPY START DATE AND END DATE: ASKU
  2. EZETIMIB TABLET 10MG / BRAND NAME NOT SPECIFIED [Concomitant]
     Active Substance: EZETIMIBE
     Dosage: 10 MG, THERAPY START AND END DATE: ASKU
  3. CARBASALAATCALCIUM BRUISTABLET 100MG / ASCAL BRISPER CARDIO?NEURO BRUI [Concomitant]
     Dosage: 100 MILLIGRAM DAILY; THERAPY START DATE AND END DATE: ASKU
  4. DILTIAZEM CAPSULE MGA 200MG / BRAND NAME NOT SPECIFIED [Concomitant]
     Dosage: MODIFIED?RELEASE CAPSULE, 200 MG, THERAPY START DATE AND END DATE: ASKU
  5. CRESTOR [Suspect]
     Active Substance: ROSUVASTATIN CALCIUM
     Indication: HYPERCHOLESTEROLAEMIA
     Dosage: 1 DOSAGE FORMS DAILY;
     Dates: start: 20000101, end: 20210612
  6. ALLOPURINOL TABLET 300MG / BRAND NAME NOT SPECIFIED [Concomitant]
     Active Substance: ALLOPURINOL
     Dosage: THERAPY START DATE AND END DATE: ASKU,  300 MG
  7. GEMFIBROZIL TABLET 900MG / BRAND NAME NOT SPECIFIED [Suspect]
     Active Substance: GEMFIBROZIL
     Indication: HYPERTRIGLYCERIDAEMIA
     Dosage: 1800 MILLIGRAM DAILY;
     Dates: start: 20140101, end: 20210613

REACTIONS (5)
  - Rhabdomyolysis [Recovering/Resolving]
  - Arthralgia [Recovered/Resolved]
  - Acute kidney injury [Recovering/Resolving]
  - Autoimmune disorder [Recovering/Resolving]
  - Myalgia [Recovered/Resolved]

NARRATIVE: CASE EVENT DATE: 20210603
